FAERS Safety Report 7668555-1 (Version None)
Quarter: 2011Q3

REPORT INFORMATION
  Report Type: 
  Country: None (occurrence: None)
  Receive Date: 20110803
  Receipt Date: 20110725
  Transmission Date: 20111222
  Serious: Yes (Hospitalization)
  Sender: FDA-Public Use
  Company Number: 994326

PATIENT
  Age: 41 Year
  Sex: Female

DRUGS (4)
  1. PROPOFOL [Suspect]
     Indication: STATUS EPILEPTICUS
  2. PROPOFOL [Suspect]
     Indication: GRAND MAL CONVULSION
  3. FOSPHENYTOIN SODIUM [Concomitant]
  4. LORAZEPAM [Concomitant]

REACTIONS (2)
  - DRUG WITHDRAWAL CONVULSIONS [None]
  - STATUS EPILEPTICUS [None]
